FAERS Safety Report 20670029 (Version 1)
Quarter: 2022Q2

REPORT INFORMATION
  Report Type: Report from Study
  Country: CL (occurrence: CL)
  Receive Date: 20220404
  Receipt Date: 20220404
  Transmission Date: 20220720
  Serious: Yes (Life-Threatening)
  Sender: FDA-Public Use
  Company Number: CL-NOVARTISPH-NVSC2022CL074997

PATIENT
  Sex: Male
  Weight: 38 kg

DRUGS (2)
  1. OMNITROPE [Suspect]
     Active Substance: SOMATROPIN
     Indication: Chronic kidney disease
     Dosage: 1.8 MG/ 10 MG, QD
     Route: 058
     Dates: start: 20220104
  2. OMNITROPE [Suspect]
     Active Substance: SOMATROPIN
     Indication: Growth disorder

REACTIONS (1)
  - Renal failure [Unknown]
